FAERS Safety Report 10191048 (Version 3)
Quarter: 2014Q3

REPORT INFORMATION
  Report Type: Spontaneous
  Country: BR (occurrence: BR)
  Receive Date: 20140523
  Receipt Date: 20140829
  Transmission Date: 20150326
  Serious: Yes (Other)
  Sender: FDA-Public Use
  Company Number: BR-ASTRAZENECA-2014SE34229

PATIENT
  Age: 54 Year
  Sex: Female
  Weight: 106 kg

DRUGS (10)
  1. RITMONORM [Concomitant]
     Indication: HYPERTENSION
     Route: 048
     Dates: start: 201403
  2. VIMOVO [Suspect]
     Active Substance: ESOMEPRAZOLE MAGNESIUM\NAPROXEN
     Indication: BONE CYST
     Dosage: 500 MG + 20 MG EVERY 12 HOURS
     Route: 048
     Dates: start: 2013, end: 2013
  3. HYDROCHLOROTHIAZIDE (NON-AZ DRUG) [Suspect]
     Active Substance: HYDROCHLOROTHIAZIDE
     Indication: HYPERTENSION
     Route: 048
  4. LOSARTAN [Concomitant]
     Active Substance: LOSARTAN
     Indication: HYPERTENSION
     Route: 048
  5. ATENOLOL. [Suspect]
     Active Substance: ATENOLOL
     Indication: HYPERTENSION
     Route: 048
  6. OMEPRAZOLE. [Suspect]
     Active Substance: OMEPRAZOLE
     Indication: GASTRITIS
     Route: 048
     Dates: start: 201403, end: 201406
  7. VIMOVO [Suspect]
     Active Substance: ESOMEPRAZOLE MAGNESIUM\NAPROXEN
     Indication: HERNIA REPAIR
     Dosage: 500 MG + 20 MG EVERY 12 HOURS
     Route: 048
     Dates: start: 2013, end: 2013
  8. VIMOVO [Suspect]
     Active Substance: ESOMEPRAZOLE MAGNESIUM\NAPROXEN
     Indication: HERNIA REPAIR
     Dosage: 500 MG + 20 MG EVERY 12 HOURS
     Route: 048
     Dates: start: 20140513, end: 20140514
  9. VIMOVO [Suspect]
     Active Substance: ESOMEPRAZOLE MAGNESIUM\NAPROXEN
     Indication: BONE CYST
     Dosage: 500 MG + 20 MG EVERY 12 HOURS
     Route: 048
     Dates: start: 20140513, end: 20140514
  10. RITMONORM [Concomitant]
     Indication: ARRHYTHMIA
     Route: 048
     Dates: start: 201403

REACTIONS (6)
  - Confusional state [Not Recovered/Not Resolved]
  - Off label use [Recovered/Resolved]
  - Palpitations [Not Recovered/Not Resolved]
  - Bone cyst [Not Recovered/Not Resolved]
  - Insomnia [Recovered/Resolved]
  - Heart rate increased [Not Recovered/Not Resolved]

NARRATIVE: CASE EVENT DATE: 2013
